FAERS Safety Report 11523276 (Version 3)
Quarter: 2016Q1

REPORT INFORMATION
  Report Type: Report from Study
  Country: JP (occurrence: JP)
  Receive Date: 20150918
  Receipt Date: 20160210
  Transmission Date: 20160525
  Serious: Yes (Death, Life-Threatening, Other)
  Sender: FDA-Public Use
  Company Number: JP-EISAI MEDICAL RESEARCH-EC-2015-010549

PATIENT
  Age: 80 Year
  Sex: Female
  Weight: 55 kg

DRUGS (10)
  1. ASTOMIN [Concomitant]
     Active Substance: DIMEMORFAN
  2. PAREPLUS [Concomitant]
  3. ADONA [Concomitant]
     Active Substance: CARBAZOCHROME SODIUM SULFONATE
  4. LENVIMA [Suspect]
     Active Substance: LENVATINIB
     Indication: THYROID CANCER
     Route: 048
     Dates: start: 20150614, end: 20150622
  5. LEVOTHYROXINE SODIUM HYDRATE [Concomitant]
  6. MEROPEN [Concomitant]
     Active Substance: MEROPENEM
  7. MAGMITT [Concomitant]
     Active Substance: MAGNESIUM OXIDE
  8. FENTOS [Concomitant]
     Active Substance: FENTANYL
  9. VASOLAN [Concomitant]
     Active Substance: VERAPAMIL HYDROCHLORIDE
  10. ADALAT [Concomitant]
     Active Substance: NIFEDIPINE

REACTIONS (3)
  - Platelet count decreased [Not Recovered/Not Resolved]
  - Malignant neoplasm progression [Fatal]
  - Pneumonia [Not Recovered/Not Resolved]

NARRATIVE: CASE EVENT DATE: 20150623
